FAERS Safety Report 4348538-X (Version None)
Quarter: 2004Q2

REPORT INFORMATION
  Report Type: 
  Country: None (occurrence: None)
  Receive Date: 20040422
  Receipt Date: 20040406
  Transmission Date: 20050107
  Serious: Yes (Hospitalization, Other)
  Sender: FDA-Public Use
  Company Number: PHBS2003JP07100

PATIENT
  Age: 78 Year
  Sex: Female
  Weight: 41 kg

DRUGS (17)
  1. GLIVEC (IMATINIB) CAPSULE [Suspect]
     Indication: CHRONIC MYELOID LEUKAEMIA
     Dosage: SEE IMAGE
     Route: 048
     Dates: start: 20030609, end: 20030616
  2. GLIVEC (IMATINIB) CAPSULE [Suspect]
     Indication: CHRONIC MYELOID LEUKAEMIA
     Dosage: SEE IMAGE
     Route: 048
     Dates: start: 20030617, end: 20030724
  3. GLIVEC (IMATINIB) CAPSULE [Suspect]
     Indication: CHRONIC MYELOID LEUKAEMIA
     Dosage: SEE IMAGE
     Route: 048
     Dates: start: 20030725, end: 20030818
  4. GLIVEC (IMATINIB) CAPSULE [Suspect]
     Indication: CHRONIC MYELOID LEUKAEMIA
     Dosage: SEE IMAGE
     Route: 048
     Dates: start: 20030819, end: 20030911
  5. GLIVEC (IMATINIB) CAPSULE [Suspect]
     Indication: CHRONIC MYELOID LEUKAEMIA
     Dosage: SEE IMAGE
     Route: 048
     Dates: start: 20030912, end: 20031008
  6. GLIVEC (IMATINIB) CAPSULE [Suspect]
     Indication: CHRONIC MYELOID LEUKAEMIA
     Dosage: SEE IMAGE
     Route: 048
     Dates: start: 20031009, end: 20031104
  7. GLIVEC (IMATINIB) CAPSULE [Suspect]
     Indication: CHRONIC MYELOID LEUKAEMIA
     Dosage: SEE IMAGE
     Route: 048
     Dates: start: 20031105, end: 20031209
  8. SLOW-K [Concomitant]
  9. URSO [Concomitant]
  10. SIGMART (NICORANDIL) [Concomitant]
  11. GLYCYRON (G;YCYRRHIZIC ACDI, AMINOACETIC ACID) [Concomitant]
  12. SELBEX (TEPRENONE) [Concomitant]
  13. NITOROL [Concomitant]
  14. PERSANTIN [Concomitant]
  15. GASTER [Concomitant]
  16. TANATRIL (IMIDAPRIL HYDROCHLORIDE) C [Concomitant]
  17. AMLODIPINE [Concomitant]

REACTIONS (15)
  - ALANINE AMINOTRANSFERASE INCREASED [None]
  - ASPARTATE AMINOTRANSFERASE INCREASED [None]
  - BLOOD ALBUMIN DECREASED [None]
  - BLOOD LACTATE DEHYDROGENASE INCREASED [None]
  - GAMMA-GLUTAMYLTRANSFERASE INCREASED [None]
  - GENERALISED OEDEMA [None]
  - HAEMATOCRIT DECREASED [None]
  - HAEMOGLOBIN DECREASED [None]
  - MALAISE [None]
  - MALIGNANT NEOPLASM PROGRESSION [None]
  - PLATELET COUNT DECREASED [None]
  - PLEURAL EFFUSION [None]
  - RED BLOOD CELL COUNT DECREASED [None]
  - WEIGHT INCREASED [None]
  - WHITE BLOOD CELL COUNT DECREASED [None]
